FAERS Safety Report 18750124 (Version 2)
Quarter: 2021Q1

REPORT INFORMATION
  Report Type: Spontaneous
  Country: US (occurrence: US)
  Receive Date: 20210118
  Receipt Date: 20210118
  Transmission Date: 20210419
  Serious: Yes (Death, Other)
  Sender: FDA-Public Use
  Company Number: US-SPECGX-T202100027

PATIENT
  Age: 35 Year
  Sex: Female
  Weight: 59 kg

DRUGS (2)
  1. METHYLPHENIDATE HYDROCHLORIDE EXTENDED RELEASE TABLETS [Suspect]
     Active Substance: METHYLPHENIDATE HYDROCHLORIDE
     Indication: PRODUCT USED FOR UNKNOWN INDICATION
     Dosage: UNK
     Route: 048
  2. BUPROPION. [Suspect]
     Active Substance: BUPROPION
     Indication: PRODUCT USED FOR UNKNOWN INDICATION
     Dosage: 90 TABLETS OF 150 MG EXTENDED RELEASE
     Route: 048

REACTIONS (12)
  - Brain death [Fatal]
  - Somnolence [Unknown]
  - Status epilepticus [Unknown]
  - Metabolic acidosis [Unknown]
  - Confusional state [Unknown]
  - Hypotension [Unknown]
  - Cardiac arrest [Unknown]
  - Sinus tachycardia [Unknown]
  - Blood pressure systolic increased [Unknown]
  - Hyperhidrosis [Unknown]
  - Intentional overdose [Fatal]
  - Bradycardia [Unknown]
